FAERS Safety Report 11214786 (Version 2)
Quarter: 2015Q3

REPORT INFORMATION
  Report Type: Spontaneous
  Country: BR (occurrence: BR)
  Receive Date: 20150624
  Receipt Date: 20150702
  Transmission Date: 20151125
  Serious: Yes (Other)
  Sender: FDA-Public Use
  Company Number: BR-SUN PHARMACEUTICAL INDUSTRIES LTD-2015R1-99124

PATIENT
  Age: 50 Year
  Sex: Male

DRUGS (1)
  1. CEPHALEXIN. [Suspect]
     Active Substance: CEPHALEXIN
     Indication: CELLULITIS ORBITAL
     Dosage: UNK
     Route: 065

REACTIONS (2)
  - Type IV hypersensitivity reaction [Unknown]
  - Rash [Unknown]
